FAERS Safety Report 4791216-3 (Version None)
Quarter: 2005Q4

REPORT INFORMATION
  Report Type: 
  Country: None (occurrence: None)
  Receive Date: 20051007
  Receipt Date: 20050405
  Transmission Date: 20060501
  Serious: Yes (Hospitalization)
  Sender: FDA-Public Use
  Company Number: DE-BRISTOL-MYERS SQUIBB COMPANY-12928743

PATIENT
  Age: 64 Year
  Sex: Female

DRUGS (7)
  1. ENDOXAN [Suspect]
     Indication: BREAST CANCER
     Dates: start: 20050223, end: 20050223
  2. EPIRUBICIN [Suspect]
     Indication: BREAST CANCER
     Route: 042
     Dates: start: 20050222, end: 20050222
  3. FEXOFENADINE HCL [Suspect]
  4. LOSARTAN POTASSIUM [Concomitant]
  5. AMLODIPINE [Concomitant]
  6. GLUCOCORTICOID [Concomitant]
  7. ANTIHISTAMINE NOS [Concomitant]

REACTIONS (4)
  - HYPERKERATOSIS [None]
  - SWELLING FACE [None]
  - SWOLLEN TONGUE [None]
  - TRACHEAL OEDEMA [None]
